FAERS Safety Report 13089695 (Version 1)
Quarter: 2017Q1

REPORT INFORMATION
  Report Type: Spontaneous
  Country: IN (occurrence: IN)
  Receive Date: 20170105
  Receipt Date: 20170105
  Transmission Date: 20170428
  Serious: Yes (Other)
  Sender: FDA-Public Use
  Company Number: IN-BAYER-2016-247394

PATIENT
  Age: 58 Year
  Sex: Male

DRUGS (1)
  1. ACETYLSALICYLIC ACID({=100 MG) [Suspect]
     Active Substance: ASPIRIN
     Indication: MYOCARDIAL ISCHAEMIA

REACTIONS (3)
  - Extradural haematoma [Recovered/Resolved]
  - Tumour haemorrhage [Recovered/Resolved]
  - Angiolipoma [Recovered/Resolved]
